FAERS Safety Report 17621169 (Version 1)
Quarter: 2020Q2

REPORT INFORMATION
  Report Type: Spontaneous
  Country: CA (occurrence: CA)
  Receive Date: 20200403
  Receipt Date: 20200403
  Transmission Date: 20200713
  Serious: Yes (Other)
  Sender: FDA-Public Use
  Company Number: CA-TEVA-2020-CA-1216073

PATIENT
  Sex: Female

DRUGS (3)
  1. VERSED [Suspect]
     Active Substance: MIDAZOLAM HYDROCHLORIDE
     Dosage: 2 MG ONCE
     Route: 042
     Dates: start: 20200313, end: 20200313
  2. PREDNISONE. [Suspect]
     Active Substance: PREDNISONE
     Dates: start: 202001
  3. FENTANYL. [Suspect]
     Active Substance: FENTANYL
     Dosage: 75 MCG ONCE
     Route: 042
     Dates: start: 20200313, end: 20200313

REACTIONS (6)
  - Ulcer [Unknown]
  - Abdominal pain [Unknown]
  - Inflammation [Unknown]
  - Haemorrhage [Not Recovered/Not Resolved]
  - Adverse event [Unknown]
  - Erythema [Not Recovered/Not Resolved]
